FAERS Safety Report 4660294-4 (Version None)
Quarter: 2005Q2

REPORT INFORMATION
  Report Type: 
  Country: None (occurrence: None)
  Receive Date: 20050505
  Receipt Date: 20050306
  Transmission Date: 20051028
  Serious: No
  Sender: FDA-Public Use
  Company Number: 2005USFACT00377

PATIENT
  Age: 81 Year
  Sex: Male
  Weight: 74.8 kg

DRUGS (3)
  1. FACTIVE [Suspect]
     Indication: RESPIRATORY TRACT INFECTION BACTERIAL
     Dosage: 320.00 MG, QD, ORAL
     Route: 048
     Dates: start: 20050304, end: 20050301
  2. IPRATROPIUM BROMIDE [Concomitant]
  3. NEBULIZER INHALATION GAS [Concomitant]

REACTIONS (3)
  - DYSPNOEA [None]
  - ERUCTATION [None]
  - GASTROOESOPHAGEAL REFLUX DISEASE [None]
